FAERS Safety Report 12330106 (Version 1)
Quarter: 2016Q2

REPORT INFORMATION
  Report Type: Spontaneous
  Country: US (occurrence: US)
  Receive Date: 20160504
  Receipt Date: 20160504
  Transmission Date: 20160815
  Serious: Yes (Other)
  Sender: FDA-Public Use
  Company Number: US-BEH-2016061913

PATIENT
  Sex: Female
  Weight: 78 kg

DRUGS (21)
  1. BIOTIN [Concomitant]
     Active Substance: BIOTIN
  2. ACIDOPHILUS [Concomitant]
     Active Substance: LACTOBACILLUS ACIDOPHILUS
  3. HIZENTRA [Suspect]
     Active Substance: HUMAN IMMUNOGLOBULIN G
  4. EPIPEN [Concomitant]
     Active Substance: EPINEPHRINE
  5. DIPHENHYDRAMINE. [Concomitant]
     Active Substance: DIPHENHYDRAMINE
  6. CELEBREX [Concomitant]
     Active Substance: CELECOXIB
  7. SIMVASTATIN. [Concomitant]
     Active Substance: SIMVASTATIN
  8. PROAIR HFA [Concomitant]
     Active Substance: ALBUTEROL SULFATE
  9. HIZENTRA [Suspect]
     Active Substance: HUMAN IMMUNOGLOBULIN G
     Indication: IMMUNODEFICIENCY COMMON VARIABLE
     Route: 058
     Dates: start: 20151210
  10. LMX [Concomitant]
     Active Substance: LIDOCAINE
  11. VERAPAMIL [Concomitant]
     Active Substance: VERAPAMIL HYDROCHLORIDE
  12. ADVAIR HFA [Concomitant]
     Active Substance: FLUTICASONE PROPIONATE\SALMETEROL XINAFOATE
  13. ACETAMINOPHEN. [Concomitant]
     Active Substance: ACETAMINOPHEN
  14. AMOXICILLIN. [Concomitant]
     Active Substance: AMOXICILLIN
  15. SINGULAIR [Concomitant]
     Active Substance: MONTELUKAST SODIUM
  16. FLUOXETINE [Concomitant]
     Active Substance: FLUOXETINE HYDROCHLORIDE
  17. DEXILANT [Concomitant]
     Active Substance: DEXLANSOPRAZOLE
  18. HIZENTRA [Suspect]
     Active Substance: HUMAN IMMUNOGLOBULIN G
  19. VITAMIN D [Concomitant]
     Active Substance: CHOLECALCIFEROL
  20. CENTRUM SILVER [Concomitant]
     Active Substance: MINERALS\VITAMINS
  21. VITAMIN B COMPLEX [Concomitant]
     Active Substance: CYANOCOBALAMIN\DEXPANTHENOL\NIACINAMIDE\PYRIDOXINE HYDROCHLORIDE\RIBOFLAVIN 5^-PHOSPHATE SODIUM\THIAMINE HYDROCHLORIDE\VITAMIN B COMPLEX

REACTIONS (3)
  - Oral candidiasis [Unknown]
  - Asthma [Unknown]
  - Lung infection [Unknown]
